FAERS Safety Report 17787440 (Version 1)
Quarter: 2020Q2

REPORT INFORMATION
  Report Type: Report from Study
  Country: None (occurrence: CA)
  Receive Date: 20200515
  Receipt Date: 20200515
  Transmission Date: 20200714
  Serious: Yes (Hospitalization)
  Sender: FDA-Public Use
  Company Number: CA-ABBVIE-20K-028-3365554-00

PATIENT
  Age: 84 Year
  Sex: Female
  Weight: 45 kg

DRUGS (2)
  1. DUODOPA [Suspect]
     Active Substance: CARBIDOPA\LEVODOPA
     Indication: PARKINSON^S DISEASE
     Route: 050
     Dates: start: 20170713
  2. SINEMET [Concomitant]
     Active Substance: CARBIDOPA\LEVODOPA
     Indication: PRODUCT USED FOR UNKNOWN INDICATION
     Dosage: AS NEEDED

REACTIONS (7)
  - General physical health deterioration [Recovering/Resolving]
  - Parkinson^s disease [Unknown]
  - Mobility decreased [Unknown]
  - On and off phenomenon [Unknown]
  - Wound [Unknown]
  - Device occlusion [Unknown]
  - Malnutrition [Unknown]

NARRATIVE: CASE EVENT DATE: 2020
